FAERS Safety Report 7164136-7 (Version None)
Quarter: 2010Q4

REPORT INFORMATION
  Report Type: 
  Country: None (occurrence: None)
  Receive Date: 20101123
  Receipt Date: 20100817
  Transmission Date: 20110411
  Serious: No
  Sender: FDA-Public Use
  Company Number: 015200

PATIENT
  Sex: Female
  Weight: 71 kg

DRUGS (11)
  1. CIMZIA [Suspect]
     Indication: CROHN'S DISEASE
     Dosage: (400 MG 1X/MONTH SUBCUTANEOUS)
     Route: 058
     Dates: start: 20100505
  2. ASACOL [Concomitant]
  3. VITAMINS /90003601/ [Concomitant]
  4. CALCIUM [Concomitant]
  5. DIOVAN [Concomitant]
  6. TOPROL-XL [Concomitant]
  7. PLAVIX [Concomitant]
  8. NORVASC [Concomitant]
  9. ASPIRIN [Concomitant]
  10. RANITIDINE [Concomitant]
  11. LIPITOR [Concomitant]

REACTIONS (8)
  - ABDOMINAL DISTENSION [None]
  - ABDOMINAL PAIN [None]
  - CHEST PAIN [None]
  - DIARRHOEA [None]
  - ERUCTATION [None]
  - FLATULENCE [None]
  - MUSCLE SPASMS [None]
  - RECTAL HAEMORRHAGE [None]
